FAERS Safety Report 17821319 (Version 3)
Quarter: 2020Q2

REPORT INFORMATION
  Report Type: Report from Study
  Country: AR (occurrence: AR)
  Receive Date: 20200525
  Receipt Date: 20200626
  Transmission Date: 20200714
  Serious: Yes (Hospitalization)
  Sender: FDA-Public Use
  Company Number: AR-ACTELION-A-CH2019-199599

PATIENT
  Sex: Female
  Weight: 56 kg

DRUGS (7)
  1. SILDENAFIL. [Concomitant]
     Active Substance: SILDENAFIL
  2. CIRCUVIT [Concomitant]
  3. OPSUMIT [Suspect]
     Active Substance: MACITENTAN
     Indication: PULMONARY ARTERIAL HYPERTENSION
     Dosage: 10 MG, QD
     Route: 048
     Dates: start: 20160115
  4. DAFIL [Concomitant]
  5. MAGNUS [Concomitant]
  6. REMODULIN [Suspect]
     Active Substance: TREPROSTINIL
     Indication: PRODUCT USED FOR UNKNOWN INDICATION
     Route: 051
  7. PROCORALAN [Concomitant]
     Active Substance: IVABRADINE

REACTIONS (9)
  - Injection site inflammation [Unknown]
  - Injection site swelling [Unknown]
  - Distractibility [Unknown]
  - Discomfort [Unknown]
  - Laziness [Unknown]
  - Hospitalisation [Recovered/Resolved]
  - Coordination abnormal [Unknown]
  - Fatigue [Unknown]
  - Injection site pain [Unknown]

NARRATIVE: CASE EVENT DATE: 2020
